FAERS Safety Report 5279706-0 (Version None)
Quarter: 2007Q1

REPORT INFORMATION
  Report Type: 
  Country: None (occurrence: None)
  Receive Date: 20070328
  Receipt Date: 20070319
  Transmission Date: 20070707
  Serious: No
  Sender: FDA-Public Use
  Company Number: US-ABBOTT-07P-163-0360198-00

PATIENT
  Sex: Female

DRUGS (2)
  1. OMNICEF [Suspect]
     Indication: OTITIS MEDIA
     Route: 048
     Dates: start: 20051101
  2. OMNICEF [Suspect]
     Route: 048
     Dates: start: 20070215

REACTIONS (10)
  - DIARRHOEA [None]
  - GASTROENTERITIS [None]
  - HAEMATOCHEZIA [None]
  - INFLUENZA [None]
  - MUCOUS STOOLS [None]
  - OVERGROWTH BACTERIAL [None]
  - PAIN [None]
  - PAIN IN EXTREMITY [None]
  - PYREXIA [None]
  - VOMITING [None]
